FAERS Safety Report 12082372 (Version 3)
Quarter: 2016Q2

REPORT INFORMATION
  Report Type: Report from Study
  Country: US (occurrence: US)
  Receive Date: 20160217
  Receipt Date: 20160506
  Transmission Date: 20160815
  Serious: Yes (Other)
  Sender: FDA-Public Use
  Company Number: US-AMGEN-USASL2016018472

PATIENT
  Age: 50 Year
  Sex: Male

DRUGS (2)
  1. ENBREL [Suspect]
     Active Substance: ETANERCEPT
     Indication: ANKYLOSING SPONDYLITIS
     Dosage: 50 MG, QWK
     Route: 065
     Dates: start: 2001
  2. ENBREL [Suspect]
     Active Substance: ETANERCEPT
     Dosage: UNK ONCE A MONTH
     Route: 065

REACTIONS (11)
  - Diabetes mellitus [Unknown]
  - Balance disorder [Unknown]
  - Gait disturbance [Unknown]
  - Blindness [Unknown]
  - Peripheral swelling [Unknown]
  - Joint effusion [Unknown]
  - Arthralgia [Unknown]
  - Skin disorder [Unknown]
  - Pain in extremity [Unknown]
  - Inappropriate schedule of drug administration [Unknown]
  - Abdominal distension [Unknown]

NARRATIVE: CASE EVENT DATE: 2001
